FAERS Safety Report 11864543 (Version 3)
Quarter: 2016Q2

REPORT INFORMATION
  Report Type: Spontaneous
  Country: US (occurrence: US)
  Receive Date: 20151223
  Receipt Date: 20160420
  Transmission Date: 20160815
  Serious: Yes (Death, Life-Threatening, Hospitalization)
  Sender: FDA-Public Use
  Company Number: US-TAIHO ONCOLOGY INC-EU-2015-00360

PATIENT
  Age: 52 Year
  Sex: Female

DRUGS (5)
  1. ZANTAC [Concomitant]
     Active Substance: RANITIDINE HYDROCHLORIDE
     Dosage: NI
  2. FUROSEMIDE. [Concomitant]
     Active Substance: FUROSEMIDE
     Dosage: NI
  3. ZOFRAN [Concomitant]
     Active Substance: ONDANSETRON HYDROCHLORIDE
     Dosage: NI
  4. POTASSIUM CHLORIDE. [Concomitant]
     Active Substance: POTASSIUM CHLORIDE
     Dosage: NI
  5. LONSURF [Suspect]
     Active Substance: TIPIRACIL HYDROCHLORIDE\TRIFLURIDINE
     Indication: COLON CANCER
     Dosage: CURRENT CYCLE UNKNOWN
     Route: 048
     Dates: start: 20151029

REACTIONS (15)
  - Metabolic acidosis [Unknown]
  - Constipation [Recovered/Resolved]
  - Abdominal pain [Unknown]
  - Disease progression [Fatal]
  - Vitamin D deficiency [Unknown]
  - Generalised oedema [Unknown]
  - Acute kidney injury [Recovering/Resolving]
  - Asthenia [Unknown]
  - Hypophagia [Unknown]
  - Hyperkalaemia [Recovered/Resolved]
  - Hyponatraemia [Recovering/Resolving]
  - Hypotension [Recovering/Resolving]
  - Fall [Recovered/Resolved]
  - Respiration abnormal [Recovering/Resolving]
  - Leukocytosis [Recovered/Resolved]

NARRATIVE: CASE EVENT DATE: 201511
